FAERS Safety Report 25313825 (Version 1)
Quarter: 2025Q2

REPORT INFORMATION
  Report Type: Spontaneous
  Country: US (occurrence: None)
  Receive Date: 20250514
  Receipt Date: 20250514
  Transmission Date: 20250716
  Serious: No
  Sender: FDA-CTU
  Company Number: None

PATIENT
  Age: 23 Year
  Sex: Female

DRUGS (1)
  1. AUSTEDO XR [Suspect]
     Active Substance: DEUTETRABENAZINE
     Indication: Huntington^s disease
     Dosage: FREQUENCY : DAILY;?
     Route: 048
     Dates: start: 20250129

REACTIONS (2)
  - Illness [None]
  - Manufacturing product shipping issue [None]

NARRATIVE: CASE EVENT DATE: 20250414
